FAERS Safety Report 9511762 (Version 1)
Quarter: 2013Q1

REPORT INFORMATION
  Report Type: Spontaneous
  Country: US (occurrence: None)
  Receive Date: 20130305
  Receipt Date: 20130305
  Transmission Date: 20140127
  Serious: Yes (Hospitalization)
  Sender: FDA-Public Use
  Company Number: 163-21880-12051717

PATIENT
  Age: 73 Year
  Sex: Male

DRUGS (18)
  1. REVLIMID [Suspect]
     Indication: PLASMA CELL MYELOMA
     Dosage: 25 MG, 1 IN 1 D, PO
     Route: 048
     Dates: start: 20100823
  2. ZOLEDRONATE (ZOLEDRONIC ACID) (UNKNOWN) [Concomitant]
  3. BORTEXOMIB (BORTEZOMIB) (UNKNOWN) [Concomitant]
  4. DEXAMETHASONE (DEXAMETHASONE) (UNKNOWN) [Concomitant]
  5. PAMIDRONATE (PAMIDRONATE DISODIUM) (UNKNOWN) [Concomitant]
  6. ACYCLOVIR (ACICLOVIR) (UNKNOWN) [Concomitant]
  7. OXYCODONE (OXYCODONE) (UNKNOWN) (OXYCODONE) [Concomitant]
  8. ENALAPRIL (ENALAPRIL) (UNKNOWN) [Concomitant]
  9. HYDROCHLOROTHIAZIDE (HYDROCHLOROTHIAZIDE) (UNKNOWN) [Concomitant]
  10. METOPROLOL (METOPROLOL) (UNKNOWN) [Concomitant]
  11. FENTANYL (FENTANYL) (POULTICE OR PATCH) [Concomitant]
  12. LEVOTHYROXINE (LEVOTHYROXINE) (UNKNOWN) [Concomitant]
  13. SENNA (SENNA) (TABLETS) [Concomitant]
  14. DOCUSATE (DOCUSATE) (UNKNOWN) [Concomitant]
  15. GUAIFENESIN/CODEINE (CHERACOL /USA/) (UNKNOWN) [Concomitant]
  16. OMEPRAZOLE (OMEPRAZOLE) (UNKNOWN) [Concomitant]
  17. TYLENOL (PARACETAMOL) (UNKNOWN) [Concomitant]
  18. AERO PENTAMIDINE (PENTAMIDINE) (UNKNOWN) [Concomitant]

REACTIONS (3)
  - Pneumonia [None]
  - Diarrhoea [None]
  - Thrombocytopenia [None]
